FAERS Safety Report 9027781 (Version 1)
Quarter: 2013Q1

REPORT INFORMATION
  Report Type: Spontaneous
  Country: US (occurrence: US)
  Receive Date: 20130124
  Receipt Date: 20130124
  Transmission Date: 20140127
  Serious: Yes (Other)
  Sender: FDA-Public Use
  Company Number: US-JNJFOC-20130108663

PATIENT
  Sex: Male
  Weight: 88.91 kg

DRUGS (1)
  1. REMICADE [Suspect]
     Indication: RHEUMATOID ARTHRITIS
     Route: 042
     Dates: start: 20090612, end: 20110418

REACTIONS (3)
  - Fall [Recovered/Resolved]
  - Cervical vertebral fracture [Recovering/Resolving]
  - Cerebrovascular accident [Unknown]
